FAERS Safety Report 22145968 (Version 4)
Quarter: 2023Q2

REPORT INFORMATION
  Report Type: Report from Study
  Country: US (occurrence: None)
  Receive Date: 20230328
  Receipt Date: 20230412
  Transmission Date: 20230722
  Serious: No
  Sender: FDA-Public Use
  Company Number: US-ROCHE-3316684

PATIENT
  Age: 57 Year
  Sex: Female

DRUGS (2)
  1. ATEZOLIZUMAB [Suspect]
     Active Substance: ATEZOLIZUMAB
     Indication: Endometrial cancer recurrent
     Dosage: LAST DOSE PRIOR TO SAE/AESI ONSET ON 21/MAR/2023 WAS1680 MG
     Route: 041
     Dates: start: 20230321
  2. BEVACIZUMAB [Suspect]
     Active Substance: BEVACIZUMAB
     Indication: Endometrial cancer recurrent
     Dosage: LAST DOSE(535MG) PRIOR TO SAE/AESI ONSET ON 21/MAR/2023
     Route: 042
     Dates: start: 20230321

REACTIONS (1)
  - Urinary tract infection [Recovering/Resolving]

NARRATIVE: CASE EVENT DATE: 20230321
